FAERS Safety Report 25926860 (Version 1)
Quarter: 2025Q4

REPORT INFORMATION
  Report Type: Spontaneous
  Country: US (occurrence: US)
  Receive Date: 20251015
  Receipt Date: 20251015
  Transmission Date: 20260118
  Serious: No
  Sender: REGENERON
  Company Number: US-REGENERON PHARMACEUTICALS, INC.-2025-142631

PATIENT
  Sex: Male

DRUGS (1)
  1. LYNOZYFIC [Suspect]
     Active Substance: LINVOSELTAMAB-GCPT
     Indication: Plasma cell myeloma refractory
     Dosage: FIRST STEP UP DOSE
     Dates: start: 20250829

REACTIONS (1)
  - Liver function test increased [Recovered/Resolved]
